FAERS Safety Report 9557717 (Version 1)
Quarter: 2013Q3

REPORT INFORMATION
  Report Type: Spontaneous
  Country: GB (occurrence: GB)
  Receive Date: 20130926
  Receipt Date: 20130926
  Transmission Date: 20140515
  Serious: Yes (Other)
  Sender: FDA-Public Use
  Company Number: GB-TEVA-433213ISR

PATIENT
  Age: 69 Year
  Sex: Female

DRUGS (3)
  1. AZITHROMYCIN [Suspect]
  2. ORENCIA [Suspect]
  3. UNSPECIFIED ANTIBIOTICS [Concomitant]

REACTIONS (1)
  - Cellulitis [Unknown]
